FAERS Safety Report 4268680-1 (Version None)
Quarter: 2004Q1

REPORT INFORMATION
  Report Type: 
  Country: None (occurrence: None)
  Receive Date: 20040109
  Receipt Date: 20031120
  Transmission Date: 20041129
  Serious: Yes (Hospitalization)
  Sender: FDA-Public Use
  Company Number: 2003GB01333

PATIENT
  Age: 55 Year
  Sex: Female
  Weight: 49 kg

DRUGS (6)
  1. ARIMIDEX [Suspect]
     Indication: BREAST CANCER
     Dosage: 1 MG QD PO
     Route: 048
     Dates: start: 19980528
  2. ASPIRIN [Concomitant]
  3. DIAZEPAM [Concomitant]
  4. CIPRAMIL [Concomitant]
  5. CO-DYDRAMOL [Concomitant]
  6. METOCLOPRAMIDE [Concomitant]

REACTIONS (2)
  - ERYTHROMELALGIA [None]
  - MEDIAN NERVE INJURY [None]
